FAERS Safety Report 18975178 (Version 1)
Quarter: 2021Q1

REPORT INFORMATION
  Report Type: Spontaneous
  Country: PL (occurrence: PL)
  Receive Date: 20210305
  Receipt Date: 20210305
  Transmission Date: 20210420
  Serious: Yes (Hospitalization, Other)
  Sender: FDA-Public Use
  Company Number: NVSC2021PL038472

PATIENT
  Age: 51 Year
  Sex: Male

DRUGS (3)
  1. SACUBITRIL,VALSARTAN [Suspect]
     Active Substance: SACUBITRIL\VALSARTAN
     Dosage: UNK (49/51MG) (AFTER 4 WEEKS IT WAS INCREASED)
     Route: 065
  2. SACUBITRIL,VALSARTAN [Suspect]
     Active Substance: SACUBITRIL\VALSARTAN
     Indication: CARDIAC FAILURE
     Dosage: UNK (24/26MG)
     Route: 065
     Dates: start: 20200305
  3. EPLERENONE. [Concomitant]
     Active Substance: EPLERENONE
     Indication: PRODUCT USED FOR UNKNOWN INDICATION
     Route: 065

REACTIONS (7)
  - Coronary artery disease [Unknown]
  - Cardiac ventricular thrombosis [Unknown]
  - Hypotension [Unknown]
  - Cerebrovascular accident [Unknown]
  - Cardiac failure chronic [Unknown]
  - Ejection fraction decreased [Unknown]
  - Anxiety [Unknown]
